FAERS Safety Report 9337756 (Version 3)
Quarter: 2013Q4

REPORT INFORMATION
  Report Type: Spontaneous
  Country: US (occurrence: US)
  Receive Date: 20130607
  Receipt Date: 20131211
  Transmission Date: 20140711
  Serious: Yes (Hospitalization)
  Sender: FDA-Public Use
  Company Number: US-B.I. PHARMACEUTICALS,INC./RIDGEFIELD-2013-BI-15787BP

PATIENT
  Sex: Male
  Weight: 108.86 kg

DRUGS (3)
  1. PRADAXA [Suspect]
     Indication: ATRIAL FIBRILLATION
     Dosage: 300 MG
     Route: 048
     Dates: start: 20110706, end: 20120224
  2. VERAPAMIL [Concomitant]
     Dosage: 180 MG
     Route: 048
     Dates: start: 2010
  3. LIPID MEDICINE [Concomitant]
     Indication: DYSLIPIDAEMIA

REACTIONS (2)
  - Haemorrhage intracranial [Unknown]
  - Fall [Unknown]
